FAERS Safety Report 13877531 (Version 2)
Quarter: 2017Q3

REPORT INFORMATION
  Report Type: Spontaneous
  Country: CH (occurrence: CH)
  Receive Date: 20170817
  Receipt Date: 20170821
  Transmission Date: 20171127
  Serious: Yes (Other)
  Sender: FDA-Public Use
  Company Number: CH-PFIZER INC-2017353760

PATIENT
  Age: 36 Year
  Sex: Male

DRUGS (9)
  1. TRILEPTAL [Suspect]
     Active Substance: OXCARBAZEPINE
     Dosage: 1200 MG, DAILY (450-450-300 MG)
     Route: 048
     Dates: start: 20170328
  2. TEMESTA [Suspect]
     Active Substance: LORAZEPAM
     Dosage: UNK UNK, AS NEEDED
     Route: 048
  3. KEPPRA [Suspect]
     Active Substance: LEVETIRACETAM
     Dosage: 1250 MG, DAILY (750MG-0-500MG)
     Route: 048
     Dates: start: 20170630
  4. OGASTORO [Suspect]
     Active Substance: LANSOPRAZOLE
     Dosage: 30 MG, 1X/DAY
     Route: 048
     Dates: start: 20170508
  5. LAXOBERON [Concomitant]
     Active Substance: SODIUM PICOSULFATE
     Dosage: 5 MG, 1X/DAY
     Route: 048
     Dates: start: 20170303
  6. ORFIRIL [Suspect]
     Active Substance: VALPROIC ACID
     Dosage: 1250 MG, 2X/DAY
     Dates: start: 20170302, end: 20170713
  7. RIVOTRIL [Concomitant]
     Active Substance: CLONAZEPAM
     Dosage: 0.25 MG, 1X/DAY (IN THE EVENING)
     Route: 048
     Dates: start: 20170302
  8. CITALOPRAM [Suspect]
     Active Substance: CITALOPRAM HYDROBROMIDE
     Dosage: 10 MG, 1X/DAY (IN THE MORNING)
     Route: 048
     Dates: start: 20170609
  9. DAFALGAN [Concomitant]
     Active Substance: ACETAMINOPHEN
     Dosage: 1 G, 3X/DAY
     Route: 048
     Dates: start: 20170413

REACTIONS (2)
  - Condition aggravated [Not Recovered/Not Resolved]
  - Hyponatraemia [Not Recovered/Not Resolved]

NARRATIVE: CASE EVENT DATE: 20170421
